FAERS Safety Report 13279197 (Version 1)
Quarter: 2017Q1

REPORT INFORMATION
  Report Type: Report from Study
  Country: US (occurrence: US)
  Receive Date: 20170228
  Receipt Date: 20170228
  Transmission Date: 20170428
  Serious: No
  Sender: FDA-Public Use
  Company Number: US-AMAG PHARMACEUTICALS, INC.-AMAG201600616

PATIENT

DRUGS (6)
  1. PROMETHAZINE [Concomitant]
     Active Substance: PROMETHAZINE\PROMETHAZINE HYDROCHLORIDE
     Indication: PREGNANCY
     Dosage: 25 MG, UNK
     Dates: start: 20160211, end: 20160402
  2. RANITIDINE. [Concomitant]
     Active Substance: RANITIDINE
     Indication: GASTROOESOPHAGEAL REFLUX DISEASE
     Dosage: 150 MG, UNK
     Dates: start: 20151215, end: 20160421
  3. GLYBURIDE. [Concomitant]
     Active Substance: GLYBURIDE
     Indication: GESTATIONAL DIABETES
     Dosage: 2.5 MG, UNK
     Dates: start: 20160324
  4. UNISOM SLEEPTABS [Concomitant]
     Active Substance: DOXYLAMINE SUCCINATE
     Indication: VOMITING IN PREGNANCY
     Dosage: 25 MG, UNK
     Dates: start: 20160201, end: 20160421
  5. PYRIDOXINE [Concomitant]
     Active Substance: PYRIDOXINE
     Indication: VOMITING IN PREGNANCY
     Dosage: 25 MG, UNK
     Dates: start: 20160201, end: 20160421
  6. MAKENA [Suspect]
     Active Substance: HYDROXYPROGESTERONE CAPROATE
     Indication: PRODUCT USED FOR UNKNOWN INDICATION
     Dosage: 250 MG, WEEKLY
     Route: 030
     Dates: start: 20160405

REACTIONS (1)
  - Amniorrhoea [Unknown]
